FAERS Safety Report 17876602 (Version 2)
Quarter: 2020Q2

REPORT INFORMATION
  Report Type: Report from Study
  Country: US (occurrence: US)
  Receive Date: 20200609
  Receipt Date: 20200625
  Transmission Date: 20200714
  Serious: Yes (Death, Life-Threatening, Hospitalization, Other)
  Sender: FDA-Public Use
  Company Number: US-SA-2020SA127960

PATIENT

DRUGS (22)
  1. SARILUMAB [Suspect]
     Active Substance: SARILUMAB
     Dosage: REGN88 OR PLACEBO 200 MG OR 400 MG, SINGLE OR MULTIPLE DOSES
     Route: 042
     Dates: start: 20200524, end: 20200524
  2. PANTOPRAZOLE [Concomitant]
     Active Substance: PANTOPRAZOLE
     Indication: GASTROOESOPHAGEAL REFLUX PROPHYLAXIS
     Dosage: 40 MG, QD
     Route: 042
     Dates: start: 20200508
  3. METHYLPREDNISOLONE SODIUM SUCCINATE. [Concomitant]
     Active Substance: METHYLPREDNISOLONE SODIUM SUCCINATE
     Indication: STEROID THERAPY
     Dosage: 40 MG, TID
     Route: 042
     Dates: start: 20200510, end: 20200515
  4. SODIUM PHOSPHATE [Concomitant]
     Active Substance: SODIUM PHOSPHATE
     Indication: VITAMIN SUPPLEMENTATION
     Dosage: 15 MMOL, AS NECESSARY
     Route: 042
     Dates: start: 20200510, end: 20200513
  5. FUROSEMIDE. [Concomitant]
     Active Substance: FUROSEMIDE
     Indication: DIURETIC THERAPY
     Dosage: 20 MG, BID
     Route: 042
     Dates: start: 20200513
  6. SARILUMAB [Suspect]
     Active Substance: SARILUMAB
     Indication: COVID-19
     Dosage: REGN88 OR PLACEBO 200 MG OR 400 MG, SINGLE OR MULTIPLE DOSES
     Route: 042
     Dates: start: 20200509, end: 20200509
  7. SARILUMAB [Suspect]
     Active Substance: SARILUMAB
     Dosage: REGN88 OR PLACEBO 200 MG OR 400 MG, SINGLE OR MULTIPLE DOSES
     Route: 042
     Dates: start: 20200510, end: 20200510
  8. VANCOMYCIN [Concomitant]
     Active Substance: VANCOMYCIN
     Dosage: 500 MG, GIVEN ONCE - RUN AT 100ML/HR,1X
     Route: 042
     Dates: start: 20200511, end: 20200511
  9. POTASSIUM CHLORIDE. [Concomitant]
     Active Substance: POTASSIUM CHLORIDE
     Indication: VITAMIN SUPPLEMENTATION
     Dosage: 20 MEQ, AS NECESSARY
     Route: 042
     Dates: start: 20200510
  10. SARILUMAB [Suspect]
     Active Substance: SARILUMAB
     Dosage: REGN88 OR PLACEBO 200 MG OR 400 MG, SINGLE OR MULTIPLE DOSES
     Route: 042
     Dates: start: 20200517, end: 20200517
  11. CEFEPIME [Concomitant]
     Active Substance: CEFEPIME HYDROCHLORIDE
     Indication: ANTIBIOTIC THERAPY
     Dosage: 1 G, 1X
     Route: 042
     Dates: start: 20200509, end: 20200509
  12. AZITHROMYCIN ANHYDROUS. [Concomitant]
     Active Substance: AZITHROMYCIN ANHYDROUS
     Indication: ANTIBIOTIC THERAPY
     Dosage: 500 MG, QD
     Route: 042
     Dates: start: 20200508, end: 20200512
  13. ACETAMINOPHEN. [Concomitant]
     Active Substance: ACETAMINOPHEN
     Indication: ANALGESIC THERAPY
     Dosage: 650 MG, AS NECESSARY
     Route: 048
     Dates: start: 20200508
  14. ENOXAPARIN [Concomitant]
     Active Substance: ENOXAPARIN
     Indication: ANTICOAGULANT THERAPY
     Dosage: 40 MG, QD
     Route: 058
     Dates: start: 20200508
  15. CLONIDINE. [Concomitant]
     Active Substance: CLONIDINE
     Indication: HYPERTENSION
     Dosage: 0.1 MG, AS NECESSARY
     Route: 048
     Dates: start: 20200515
  16. CEFEPIME [Concomitant]
     Active Substance: CEFEPIME HYDROCHLORIDE
     Dosage: 1 G, BID
     Route: 042
     Dates: start: 20200509
  17. VANCOMYCIN [Concomitant]
     Active Substance: VANCOMYCIN
     Dosage: 1000 MG, GIVEN ONCE - RUN AT 166.67ML/HR, 1X
     Route: 042
     Dates: start: 20200509, end: 20200515
  18. FENTANYL. [Concomitant]
     Active Substance: FENTANYL
     Dosage: 50-100 ?G, AS NECESSARY
     Route: 042
     Dates: start: 20200512
  19. VANCOMYCIN [Concomitant]
     Active Substance: VANCOMYCIN
     Indication: ANTIBIOTIC THERAPY
     Dosage: 750 MG, RUN AT 166.67 ML/HR
     Route: 042
     Dates: start: 20200509, end: 20200513
  20. GUAIFENESIN LA [Concomitant]
     Indication: SECRETION DISCHARGE
     Dosage: 600 MG, 1X
     Route: 048
     Dates: start: 20200510, end: 20200510
  21. FENTANYL. [Concomitant]
     Active Substance: FENTANYL
     Indication: ANALGESIC THERAPY
     Dosage: 1000UG,CONT
     Route: 042
     Dates: start: 20200512
  22. INSULIN [Concomitant]
     Active Substance: INSULIN NOS
     Indication: DIABETES MELLITUS
     Dosage: TITRATE PER SLIDING SCALE
     Route: 058
     Dates: start: 20200508

REACTIONS (5)
  - Thrombocytopenia [Unknown]
  - Lung infiltration [Unknown]
  - Acute respiratory failure [Fatal]
  - Atrial fibrillation [Unknown]
  - Anaemia [Unknown]

NARRATIVE: CASE EVENT DATE: 20200510
